FAERS Safety Report 24575997 (Version 1)
Quarter: 2024Q4

REPORT INFORMATION
  Report Type: Report from Study
  Country: AE (occurrence: AE)
  Receive Date: 20241104
  Receipt Date: 20241104
  Transmission Date: 20250115
  Serious: Yes (Hospitalization)
  Sender: ROCHE
  Company Number: AE-ROCHE-10000118418

PATIENT
  Age: 7 Year
  Sex: Male

DRUGS (1)
  1. HEMLIBRA [Suspect]
     Active Substance: EMICIZUMAB-KXWH
     Indication: Factor VIII deficiency
     Route: 065

REACTIONS (6)
  - Pain in extremity [Unknown]
  - Musculoskeletal pain [Unknown]
  - Swelling [Unknown]
  - Enterobacter infection [Unknown]
  - Klebsiella infection [Unknown]
  - Influenza [Unknown]

NARRATIVE: CASE EVENT DATE: 20190310
